FAERS Safety Report 8378482-2 (Version None)
Quarter: 2012Q2

REPORT INFORMATION
  Report Type: 
  Country: None (occurrence: None)
  Receive Date: 20120522
  Receipt Date: 20110920
  Transmission Date: 20120825
  Serious: No
  Sender: FDA-Public Use
  Company Number: US-ASTRAZENECA-2011SE56489

PATIENT
  Sex: Male

DRUGS (1)
  1. PRILOSEC [Suspect]
     Indication: GASTROOESOPHAGEAL REFLUX DISEASE
     Route: 048

REACTIONS (6)
  - MALAISE [None]
  - OFF LABEL USE [None]
  - DRUG INEFFECTIVE [None]
  - MENTAL DISABILITY [None]
  - PHYSICAL DISABILITY [None]
  - ADVERSE DRUG REACTION [None]
